FAERS Safety Report 9000082 (Version 2)
Quarter: 2013Q1

REPORT INFORMATION
  Report Type: Report from Study
  Country: IT (occurrence: IT)
  Receive Date: 20130102
  Receipt Date: 20130219
  Transmission Date: 20140127
  Serious: Yes (Other)
  Sender: FDA-Public Use
  Company Number: IT-BRISTOL-MYERS SQUIBB COMPANY-17236316

PATIENT
  Sex: 0

DRUGS (1)
  1. ABATACEPT [Suspect]

REACTIONS (1)
  - Pneumonia streptococcal [Unknown]
